FAERS Safety Report 14777101 (Version 1)
Quarter: 2018Q2

REPORT INFORMATION
  Report Type: Spontaneous
  Country: NL (occurrence: NL)
  Receive Date: 20180419
  Receipt Date: 20180419
  Transmission Date: 20180711
  Serious: Yes (Hospitalization, Other)
  Sender: FDA-Public Use
  Company Number: NL-ACCORD-065714

PATIENT
  Sex: Male

DRUGS (1)
  1. TACROLIMUS. [Suspect]
     Active Substance: TACROLIMUS
     Indication: RENAL TRANSPLANT
     Dates: start: 20170716

REACTIONS (3)
  - Pulmonary hypertension [Unknown]
  - Fluid retention [Unknown]
  - Hypoxia [Unknown]

NARRATIVE: CASE EVENT DATE: 20170716
